FAERS Safety Report 6747030-2 (Version None)
Quarter: 2010Q2

REPORT INFORMATION
  Report Type: 
  Country: None (occurrence: None)
  Receive Date: 20100528
  Receipt Date: 20100524
  Transmission Date: 20101027
  Serious: Yes (Death, Other)
  Sender: FDA-Public Use
  Company Number: PHHY2010GB14283

PATIENT
  Sex: Male

DRUGS (3)
  1. CLOZARIL [Suspect]
     Indication: SCHIZOPHRENIA
     Dosage: UNK
     Dates: start: 20090129
  2. VALPROIC ACID [Concomitant]
  3. LITHIUM [Concomitant]

REACTIONS (9)
  - ANTIPSYCHOTIC DRUG LEVEL BELOW THERAPEUTIC [None]
  - ATELECTASIS [None]
  - CONTUSION [None]
  - DEATH [None]
  - FALL [None]
  - GASTRITIS EROSIVE [None]
  - HEAD INJURY [None]
  - PULMONARY CONGESTION [None]
  - PULMONARY OEDEMA [None]
